FAERS Safety Report 25226721 (Version 1)
Quarter: 2025Q2

REPORT INFORMATION
  Report Type: Other
  Country: CN (occurrence: CN)
  Receive Date: 20250422
  Receipt Date: 20250422
  Transmission Date: 20250716
  Serious: Yes (Hospitalization)
  Sender: TETRAPHASE PHARMACEUTICALS, INC.
  Company Number: None

PATIENT

DRUGS (2)
  1. XERAVA [Suspect]
     Active Substance: ERAVACYCLINE DIHYDROCHLORIDE
     Indication: Pneumonia
     Dosage: 50 MG, BID (Q12H)
     Route: 041
     Dates: start: 20250322, end: 20250329
  2. CEFOPERAZONE SODIUM\SULBACTAM SODIUM [Concomitant]
     Active Substance: CEFOPERAZONE SODIUM\SULBACTAM SODIUM
     Indication: Pneumonia
     Dates: start: 20250321

REACTIONS (4)
  - Prothrombin time prolonged [Recovering/Resolving]
  - Prothrombin level decreased [Recovering/Resolving]
  - Diarrhoea [Recovering/Resolving]
  - Off label use [Unknown]

NARRATIVE: CASE EVENT DATE: 20250322
